FAERS Safety Report 11123579 (Version 1)
Quarter: 2015Q2

REPORT INFORMATION
  Report Type: Spontaneous
  Country: CA (occurrence: CA)
  Receive Date: 20150519
  Receipt Date: 20150519
  Transmission Date: 20150821
  Serious: Yes (Life-Threatening, Hospitalization, Other)
  Sender: FDA-Public Use
  Company Number: CHPA2015CA006334

PATIENT
  Age: 24 Year
  Sex: Male

DRUGS (2)
  1. BUCKLEY^S COUGH + COLD [Suspect]
     Active Substance: DEXTROMETHORPHAN HYDROBROMIDE\PSEUDOEPHEDRINE HYDROCHLORIDE
     Indication: NASOPHARYNGITIS
     Dosage: UNK, EVERY 4 TO 6 HOURS
     Route: 048
     Dates: start: 201212, end: 20130106
  2. BUCKLEY^S COUGH + COLD [Suspect]
     Active Substance: DEXTROMETHORPHAN HYDROBROMIDE\PSEUDOEPHEDRINE HYDROCHLORIDE
     Indication: INFLUENZA

REACTIONS (5)
  - Encephalitis [Unknown]
  - Coma [Recovered/Resolved]
  - Brain injury [Not Recovered/Not Resolved]
  - Seizure [Not Recovered/Not Resolved]
  - Generalised tonic-clonic seizure [Not Recovered/Not Resolved]

NARRATIVE: CASE EVENT DATE: 20130107
